FAERS Safety Report 26040557 (Version 2)
Quarter: 2025Q4

REPORT INFORMATION
  Report Type: Spontaneous
  Country: EU (occurrence: EU)
  Receive Date: 20251113
  Receipt Date: 20251124
  Transmission Date: 20260117
  Serious: Yes (Other)
  Sender: TORRENT PHARMA INC.
  Company Number: None

PATIENT
  Sex: Male

DRUGS (5)
  1. VENLAFAXINE HYDROCHLORIDE [Interacting]
     Active Substance: VENLAFAXINE HYDROCHLORIDE
     Indication: Depression
     Dosage: ONCE IN THE MORNING/DAY
     Route: 065
  2. VENLAFAXINE HYDROCHLORIDE [Interacting]
     Active Substance: VENLAFAXINE HYDROCHLORIDE
     Indication: Depression
     Dosage: ONCE IN THE MORNING/DAY
     Route: 065
  3. QUETIAPINE [Interacting]
     Active Substance: QUETIAPINE
     Indication: Sleep disorder
     Dosage: 50 MG, ONCE IN THE EVENING, 1/2 HOUR BEFORE GOING BED SLEEP-INDUCING DRUG
     Route: 065
  4. CLOZAPINE [Concomitant]
     Active Substance: CLOZAPINE
     Indication: Mania
     Dosage: 50 MG
     Route: 065
  5. OMEPRAZOLE [Concomitant]
     Active Substance: OMEPRAZOLE
     Indication: Product used for unknown indication
     Dosage: UNKNOWN
     Route: 065

REACTIONS (34)
  - Hypoaesthesia [Not Recovered/Not Resolved]
  - Formication [Not Recovered/Not Resolved]
  - Alopecia [Not Recovered/Not Resolved]
  - Blood triglycerides increased [Not Recovered/Not Resolved]
  - Serotonin syndrome [Not Recovered/Not Resolved]
  - Drug interaction [Unknown]
  - Restlessness [Unknown]
  - Blood pressure fluctuation [Unknown]
  - Psychomotor hyperactivity [Unknown]
  - Diarrhoea [Unknown]
  - Dysphagia [Unknown]
  - Dyspnoea [Unknown]
  - Dyspnoea exertional [Unknown]
  - Muscular weakness [Unknown]
  - Psychiatric symptom [Unknown]
  - Dizziness [Unknown]
  - Movement disorder [Unknown]
  - Muscle spasms [Unknown]
  - Neuropathy peripheral [Not Recovered/Not Resolved]
  - Visual impairment [Not Recovered/Not Resolved]
  - Mydriasis [Not Recovered/Not Resolved]
  - Accommodation disorder [Not Recovered/Not Resolved]
  - Photophobia [Not Recovered/Not Resolved]
  - Red blood cell count decreased [Not Recovered/Not Resolved]
  - Eye pain [Not Recovered/Not Resolved]
  - Vision blurred [Not Recovered/Not Resolved]
  - Anorgasmia [Not Recovered/Not Resolved]
  - Libido decreased [Not Recovered/Not Resolved]
  - Disturbance in sexual arousal [Not Recovered/Not Resolved]
  - Male sexual dysfunction [Not Recovered/Not Resolved]
  - Ejaculation disorder [Not Recovered/Not Resolved]
  - Erectile dysfunction [Not Recovered/Not Resolved]
  - Product use in unapproved indication [Unknown]
  - Labelled drug-drug interaction issue [Unknown]
